FAERS Safety Report 16798971 (Version 3)
Quarter: 2020Q3

REPORT INFORMATION
  Report Type: Spontaneous
  Country: US (occurrence: US)
  Receive Date: 20190912
  Receipt Date: 20200804
  Transmission Date: 20201102
  Serious: No
  Sender: FDA-Public Use
  Company Number: US-PFIZER INC-2019162927

PATIENT
  Age: 89 Year
  Sex: Female
  Weight: 50.8 kg

DRUGS (5)
  1. PREMARIN [Suspect]
     Active Substance: ESTROGENS, CONJUGATED
     Indication: HORMONE REPLACEMENT THERAPY
     Dosage: 1 G, DAILY
     Route: 067
     Dates: start: 20190507
  2. PREMARIN [Suspect]
     Active Substance: ESTROGENS, CONJUGATED
     Dosage: 1 G, DAILY
     Route: 067
  3. PREMARIN [Suspect]
     Active Substance: ESTROGENS, CONJUGATED
     Indication: VULVOVAGINAL DRYNESS
     Dosage: 1 G, DAILY
     Route: 067
     Dates: start: 20190404
  4. PREMARIN [Suspect]
     Active Substance: ESTROGENS, CONJUGATED
     Dosage: UNK
  5. LEVOXYL [Concomitant]
     Active Substance: LEVOTHYROXINE SODIUM
     Indication: THYROID DISORDER
     Dosage: 50 MG, 1X/DAY (EVERY MORNING WITH A GLASS OF WATER)

REACTIONS (5)
  - Product use issue [Unknown]
  - Depression [Unknown]
  - Off label use [Unknown]
  - Crying [Unknown]
  - Laziness [Unknown]

NARRATIVE: CASE EVENT DATE: 20190404
